FAERS Safety Report 9655840 (Version 1)
Quarter: 2013Q4

REPORT INFORMATION
  Report Type: Spontaneous
  Country: DE (occurrence: DE)
  Receive Date: 20131030
  Receipt Date: 20131030
  Transmission Date: 20140711
  Serious: Yes (Other)
  Sender: FDA-Public Use
  Company Number: DE-AMGEN-DEUSP2013075526

PATIENT
  Age: 54 Year
  Sex: Female

DRUGS (10)
  1. XGEVA [Suspect]
     Indication: BREAST CANCER METASTATIC
     Dosage: 120 MG, UNK
     Route: 065
  2. TAXOTERE [Concomitant]
     Indication: BREAST CANCER METASTATIC
  3. DOXORUBICIN [Concomitant]
     Indication: BREAST CANCER METASTATIC
  4. CYCLOPHOSPHAMIDE [Concomitant]
     Indication: BREAST CANCER METASTATIC
  5. RAMOSETRON [Concomitant]
     Indication: BREAST CANCER METASTATIC
  6. APREPITANT [Concomitant]
     Indication: BREAST CANCER METASTATIC
  7. DEXAMETHASONE [Concomitant]
     Indication: BREAST CANCER METASTATIC
  8. TAMOXIFEN [Concomitant]
     Indication: BREAST CANCER METASTATIC
  9. TAXOL [Concomitant]
     Indication: BREAST CANCER METASTATIC
  10. AVASTIN                            /00848101/ [Concomitant]
     Indication: BREAST CANCER METASTATIC

REACTIONS (1)
  - Osteonecrosis of jaw [Unknown]
